FAERS Safety Report 4624843-4 (Version None)
Quarter: 2005Q2

REPORT INFORMATION
  Report Type: 
  Country: None (occurrence: None)
  Receive Date: 20050325
  Receipt Date: 20050105
  Transmission Date: 20051028
  Serious: No
  Sender: FDA-Public Use
  Company Number: USA050187536

PATIENT
  Age: 67 Year
  Sex: Female
  Weight: 43 kg

DRUGS (2)
  1. FORTEO [Suspect]
     Indication: OSTEOPOROSIS
     Dosage: 20 UG
     Dates: start: 20040501
  2. CALCIUM GLUCONATE [Concomitant]

REACTIONS (2)
  - BODY HEIGHT DECREASED [None]
  - JOINT RANGE OF MOTION DECREASED [None]
